FAERS Safety Report 5056215-5 (Version None)
Quarter: 2006Q3

REPORT INFORMATION
  Report Type: 
  Country: None (occurrence: None)
  Receive Date: 20060717
  Receipt Date: 20060710
  Transmission Date: 20061208
  Serious: Yes (Hospitalization)
  Sender: FDA-Public Use
  Company Number: 2006084784

PATIENT
  Age: 29 Year
  Sex: Male

DRUGS (2)
  1. SULFASALAZINE [Suspect]
     Indication: DRUG USE FOR UNKNOWN INDICATION
     Dates: start: 20060501, end: 20060609
  2. KETOPROFEN [Concomitant]

REACTIONS (5)
  - CHILLS [None]
  - FACE OEDEMA [None]
  - HYPERHIDROSIS [None]
  - PYREXIA [None]
  - RASH MACULO-PAPULAR [None]
